FAERS Safety Report 8162693-5 (Version None)
Quarter: 2012Q1

REPORT INFORMATION
  Report Type: 
  Country: None (occurrence: None)
  Receive Date: 20120224
  Receipt Date: 20120213
  Transmission Date: 20120608
  Serious: Yes (Other)
  Sender: FDA-Public Use
  Company Number: ES-SHIRE-SPV1-2012-00144

PATIENT
  Sex: Female
  Weight: 74 kg

DRUGS (2)
  1. ANAGRELIDE HYDROCHLORIDE [Suspect]
     Indication: ESSENTIAL THROMBOCYTHAEMIA
     Dosage: 1MG/QD ON TUES THRS, AND 0.5MG REST OF THE DAYS, 1X/DAY:QD
     Route: 048
     Dates: start: 20100616, end: 20111201
  2. LOSARTAN POTASSIUM [Concomitant]
     Indication: HYPERTENSION
     Dosage: 100 MG, 1X/DAY:QD

REACTIONS (2)
  - BONE MARROW RETICULIN FIBROSIS [None]
  - HAEMATOTOXICITY [None]
